FAERS Safety Report 22051315 (Version 2)
Quarter: 2023Q2

REPORT INFORMATION
  Report Type: Spontaneous
  Country: JP (occurrence: JP)
  Receive Date: 20230301
  Receipt Date: 20230412
  Transmission Date: 20230722
  Serious: Yes (Other)
  Sender: FDA-Public Use
  Company Number: JP-002147023-NVSJ2023JP003724

PATIENT
  Age: 87 Year
  Sex: Male

DRUGS (1)
  1. VOTRIENT [Suspect]
     Active Substance: PAZOPANIB HYDROCHLORIDE
     Indication: Renal cell carcinoma
     Dosage: 800 MG
     Route: 048
     Dates: start: 202003

REACTIONS (2)
  - Cholangiocarcinoma [Unknown]
  - Second primary malignancy [Unknown]

NARRATIVE: CASE EVENT DATE: 20230203
